FAERS Safety Report 5761564-9 (Version None)
Quarter: 2008Q2

REPORT INFORMATION
  Report Type: 
  Country: None (occurrence: None)
  Receive Date: 20080606
  Receipt Date: 20080527
  Transmission Date: 20081010
  Serious: Yes (Other)
  Sender: FDA-Public Use
  Company Number: BE-AMGEN-UK274528

PATIENT
  Sex: Female

DRUGS (10)
  1. MIMPARA [Suspect]
     Indication: DRUG USE FOR UNKNOWN INDICATION
     Route: 048
     Dates: start: 20080215, end: 20080409
  2. CALCIUM CARBONATE [Concomitant]
     Route: 048
  3. RENAGEL [Concomitant]
     Route: 048
  4. ALLOPURINOL [Concomitant]
  5. XANAX [Concomitant]
  6. MS CONTIN [Concomitant]
  7. ZURCAL [Concomitant]
  8. SERTRALINE [Concomitant]
  9. ASAFLOW [Concomitant]
  10. VENTOLIN [Concomitant]

REACTIONS (3)
  - BLOOD ALKALINE PHOSPHATASE INCREASED [None]
  - HYPOCALCAEMIA [None]
  - LOW TURNOVER OSTEOPATHY [None]
